FAERS Safety Report 9315064 (Version 1)
Quarter: 2013Q2

REPORT INFORMATION
  Report Type: Spontaneous
  Country: US (occurrence: US)
  Receive Date: 20130529
  Receipt Date: 20130529
  Transmission Date: 20140414
  Serious: Yes (Life-Threatening, Hospitalization)
  Sender: FDA-Public Use
  Company Number: US-ELI_LILLY_AND_COMPANY-US201305007233

PATIENT
  Age: 57 Year
  Sex: Male

DRUGS (5)
  1. EFFIENT [Suspect]
     Indication: STENT PLACEMENT
     Dosage: 1 DF, SINGLE
     Route: 048
     Dates: start: 20130424
  2. EFFIENT [Suspect]
     Dosage: 10 MG, UNKNOWN
  3. ASPIRIN [Concomitant]
     Dosage: 325 MG, UNKNOWN
  4. COREG [Concomitant]
     Dosage: 6.25 MG, BID
  5. RAMIPRIL [Concomitant]

REACTIONS (2)
  - Ischaemic stroke [Unknown]
  - Haemorrhagic transformation stroke [Unknown]
